FAERS Safety Report 21705058 (Version 1)
Quarter: 2022Q4

REPORT INFORMATION
  Report Type: Spontaneous
  Country: US (occurrence: None)
  Receive Date: 20221207
  Receipt Date: 20221207
  Transmission Date: 20230113
  Serious: No
  Sender: FDA-Public Use
  Company Number: None

PATIENT
  Age: 51 Year
  Sex: Female
  Weight: 151.5 kg

DRUGS (3)
  1. VALSARTAN [Suspect]
     Active Substance: VALSARTAN
     Indication: Cardiomyopathy
     Dosage: FREQUENCY : DAILY;?
     Route: 048
     Dates: start: 2013, end: 2014
  2. VALSARTAN [Suspect]
     Active Substance: VALSARTAN
     Indication: Hypertension
  3. IRBESARTAN [Suspect]
     Active Substance: IRBESARTAN

REACTIONS (6)
  - Blood pressure increased [None]
  - Anxiety [None]
  - Dizziness [None]
  - Drug intolerance [None]
  - Abdominal discomfort [None]
  - Product substitution issue [None]

NARRATIVE: CASE EVENT DATE: 20140101
